FAERS Safety Report 9378948 (Version 3)
Quarter: 2013Q2

REPORT INFORMATION
  Report Type: Spontaneous
  Country: US (occurrence: None)
  Receive Date: 20130308
  Receipt Date: 20130513
  Transmission Date: 20140414
  Serious: Yes (Death, Other)
  Sender: FDA-Public Use
  Company Number: 2013-0225

PATIENT
  Age: 65 Year
  Sex: Female
  Weight: 45.36 kg

DRUGS (5)
  1. KYPROLIS [Suspect]
     Indication: PLASMA CELL MYELOMA
     Route: 042
     Dates: start: 20121220, end: 20130109
  2. ZOMETA [Concomitant]
  3. DECADRON [Concomitant]
  4. KLOR-CON [Concomitant]
  5. EDECRIN [Concomitant]

REACTIONS (20)
  - Nausea [None]
  - Migraine [None]
  - Vomiting [None]
  - Swelling face [None]
  - Rash [None]
  - Fatigue [None]
  - Local swelling [None]
  - Contusion [None]
  - Unresponsive to stimuli [None]
  - Mouth breathing [None]
  - Drooling [None]
  - Respiratory distress [None]
  - Abdominal distension [None]
  - Cerebrovascular accident [None]
  - Plasma cell myeloma [None]
  - Skin disorder [None]
  - Pain [None]
  - Stomatitis [None]
  - Epistaxis [None]
  - Tachycardia [None]
